FAERS Safety Report 7764648-9 (Version None)
Quarter: 2011Q3

REPORT INFORMATION
  Report Type: 
  Country: None (occurrence: None)
  Receive Date: 20110921
  Receipt Date: 20110915
  Transmission Date: 20111222
  Serious: Yes (Life-Threatening, Hospitalization)
  Sender: FDA-Public Use
  Company Number: PHHY2011KR82666

PATIENT
  Age: 31 Year
  Sex: Male

DRUGS (1)
  1. POTASSIUM CHLORIDE [Suspect]
     Dosage: 10 G, TWO VIALS
     Route: 042

REACTIONS (5)
  - MYOGLOBIN BLOOD INCREASED [None]
  - CHEMICAL BURN OF SKIN [None]
  - SKIN NECROSIS [None]
  - SUICIDE ATTEMPT [None]
  - WHITE BLOOD CELL COUNT INCREASED [None]
